FAERS Safety Report 8183288-3 (Version None)
Quarter: 2012Q1

REPORT INFORMATION
  Report Type: 
  Country: None (occurrence: None)
  Receive Date: 20120305
  Receipt Date: 20120220
  Transmission Date: 20120608
  Serious: Yes (Hospitalization)
  Sender: FDA-Public Use
  Company Number: PT-SANOFI-AVENTIS-2012SA011614

PATIENT
  Sex: Female

DRUGS (14)
  1. HYDROXYCHLOROQUINE SULFATE [Suspect]
     Indication: RHEUMATOID ARTHRITIS
     Route: 065
     Dates: start: 19950101
  2. ADALIMUMAB [Suspect]
     Indication: RHEUMATOID ARTHRITIS
     Route: 065
     Dates: start: 20030401
  3. ALENDRONATE SODIUM [Suspect]
     Indication: RHEUMATOID ARTHRITIS
     Route: 065
     Dates: start: 20030101
  4. METHOTREXATE [Suspect]
     Indication: RHEUMATOID ARTHRITIS
     Route: 065
     Dates: start: 20040601, end: 20060301
  5. METHOTREXATE [Suspect]
     Dosage: UP TO 7.5 MG PER WEEK
     Route: 065
     Dates: start: 19950101, end: 19970101
  6. CALCIUM [Concomitant]
  7. VITAMIN D [Concomitant]
  8. RITUXIMAB [Concomitant]
     Indication: RHEUMATOID ARTHRITIS
     Dosage: GIVEN AT A FREQUENCY OF TWO WEEKS APART
     Dates: start: 20070401
  9. PREDNISOLONE [Suspect]
     Indication: RHEUMATOID ARTHRITIS
     Dosage: 5-10 MG PER DAY
     Route: 065
  10. SULFASALAZINE [Suspect]
     Indication: RHEUMATOID ARTHRITIS
     Route: 065
  11. ETANERCEPT [Suspect]
     Indication: RHEUMATOID ARTHRITIS
     Route: 065
     Dates: start: 20060301
  12. PREDNISONE TAB [Suspect]
     Indication: RHEUMATOID ARTHRITIS
     Route: 065
     Dates: start: 20030401
  13. AZATHIOPRINE [Suspect]
     Indication: RHEUMATOID ARTHRITIS
     Route: 065
     Dates: start: 19971201
  14. GOLD PREPARATIONS [Concomitant]
     Indication: RHEUMATOID ARTHRITIS
     Dates: start: 19920101, end: 19940301

REACTIONS (20)
  - VOMITING [None]
  - HEPATIC STEATOSIS [None]
  - ASPARTATE AMINOTRANSFERASE INCREASED [None]
  - ASTHENIA [None]
  - STEATORRHOEA [None]
  - MUCOSAL INFLAMMATION [None]
  - CHOLESTASIS [None]
  - GAMMA-GLUTAMYLTRANSFERASE INCREASED [None]
  - BLOOD ALKALINE PHOSPHATASE INCREASED [None]
  - OSTEOPOROSIS [None]
  - BONE EROSION [None]
  - PYREXIA [None]
  - ALANINE AMINOTRANSFERASE INCREASED [None]
  - NAUSEA [None]
  - BLOOD IMMUNOGLOBULIN M INCREASED [None]
  - WRIST FRACTURE [None]
  - EXCORIATION [None]
  - WEIGHT DECREASED [None]
  - RIB FRACTURE [None]
  - CHEST PAIN [None]
